FAERS Safety Report 8836615 (Version 1)
Quarter: 2012Q4

REPORT INFORMATION
  Report Type: Spontaneous
  Country: IN (occurrence: None)
  Receive Date: 20121009
  Receipt Date: 20121009
  Transmission Date: 20130627
  Serious: Yes (Hospitalization)
  Sender: FDA-Public Use
  Company Number: IN-MACLEODS PHARMA-000031

PATIENT
  Age: 11 Year
  Sex: Male

DRUGS (2)
  1. PANTOPRAZOLE (PANTOPRAZOLE) [Suspect]
     Indication: GASTROESOPHAGEAL REFLUX DISEASE
     Route: 048
  2. PANTOPRAZOLE (PANTOPRAZOLE) [Suspect]
     Indication: GASTROESOPHAGEAL REFLUX DISEASE

REACTIONS (4)
  - Pancreatitis acute [None]
  - Blood pressure decreased [None]
  - Electrocardiogram ST segment abnormal [None]
  - Electrocardiogram QT prolonged [None]
